FAERS Safety Report 18027370 (Version 1)
Quarter: 2020Q3

REPORT INFORMATION
  Report Type: Spontaneous
  Country: NL (occurrence: NL)
  Receive Date: 20200715
  Receipt Date: 20200715
  Transmission Date: 20201103
  Serious: Yes (Other)
  Sender: FDA-Public Use
  Company Number: NL-SA-2020SA179057

PATIENT

DRUGS (6)
  1. PANTOPRAZOLE [Concomitant]
     Active Substance: PANTOPRAZOLE
     Dosage: GASTRO?RESISTANT TABLET, 20 MG (MILLIGRAM)
  2. XARELTO [Concomitant]
     Active Substance: RIVAROXABAN
     Dosage: TABLET, 20 MG (MILLIGRAM)
  3. FOSTER [Concomitant]
     Active Substance: BECLOMETHASONE\FORMOTEROL
     Dosage: AEROSOL, 100/6 ?G / DOSE (MICROGRAMS PER DOSE)
  4. NIFEDIPINE. [Concomitant]
     Active Substance: NIFEDIPINE
     Dosage: TABLET 8 MG
  5. TAMSULOSIN HYDROCHLORIDE. [Suspect]
     Active Substance: TAMSULOSIN HYDROCHLORIDE
     Indication: MICTURITION DISORDER
     Dosage: UNK MG, QD, 1XPER DAY1 CAPSULE, 0.4 MG
     Dates: start: 20200525, end: 20200613
  6. CANDESARTAN. [Concomitant]
     Active Substance: CANDESARTAN
     Dosage: TABLET, 8 MG

REACTIONS (5)
  - Insomnia [Unknown]
  - Erectile dysfunction [Unknown]
  - Libido decreased [Unknown]
  - Malaise [Unknown]
  - Alopecia [Not Recovered/Not Resolved]
